FAERS Safety Report 10383977 (Version 1)
Quarter: 2014Q3

REPORT INFORMATION
  Report Type: Spontaneous
  Country: US (occurrence: US)
  Receive Date: 20140814
  Receipt Date: 20140814
  Transmission Date: 20150326
  Serious: Yes (Life-Threatening, Other)
  Sender: FDA-Public Use
  Company Number: US-MYLANLABS-2014M1001236

PATIENT

DRUGS (6)
  1. ACTIVASE [Suspect]
     Active Substance: ALTEPLASE
     Dosage: 81MG INFUSION OVER 60 MINUTES
     Route: 041
  2. ASPIRIN. [Concomitant]
     Active Substance: ASPIRIN
     Dosage: 81MG DAILY
     Route: 048
  3. SPIRONOLACTONE. [Concomitant]
     Active Substance: SPIRONOLACTONE
     Route: 048
  4. LISINOPRIL. [Suspect]
     Active Substance: LISINOPRIL
     Indication: HYPERTENSION
     Dosage: 40 MG, QD
     Route: 048
  5. ACTIVASE [Suspect]
     Active Substance: ALTEPLASE
     Dosage: 9MG BOLUS OVER 1 MINUTE
     Route: 040
  6. AMLODIPINE [Concomitant]
     Active Substance: AMLODIPINE BESYLATE
     Dosage: 10MG DAILY
     Route: 048

REACTIONS (4)
  - Hemiparesis [Unknown]
  - Dysarthria [Unknown]
  - Angioedema [Recovered/Resolved]
  - VIIth nerve paralysis [Unknown]
